FAERS Safety Report 8787998 (Version 2)
Quarter: 2015Q2

REPORT INFORMATION
  Report Type: Report from Study
  Country: US (occurrence: US)
  Receive Date: 20120914
  Receipt Date: 20150409
  Transmission Date: 20150821
  Serious: Yes (Death)
  Sender: FDA-Public Use
  Company Number: US-ROCHE-1127810

PATIENT
  Sex: Female

DRUGS (5)
  1. 5-FU [Concomitant]
     Active Substance: FLUOROURACIL
  2. AVASTIN [Suspect]
     Active Substance: BEVACIZUMAB
     Indication: METASTASES TO LIVER
     Route: 042
     Dates: start: 20091118
  3. OXALIPLATIN. [Concomitant]
     Active Substance: OXALIPLATIN
  4. LEUCOVORIN [Concomitant]
     Active Substance: LEUCOVORIN
  5. AVASTIN [Suspect]
     Active Substance: BEVACIZUMAB
     Indication: RECTAL CANCER

REACTIONS (2)
  - Malaise [Unknown]
  - Death [Fatal]
